FAERS Safety Report 5136438-7 (Version None)
Quarter: 2006Q4

REPORT INFORMATION
  Report Type: 
  Country: None (occurrence: None)
  Receive Date: 20061027
  Receipt Date: 20060330
  Transmission Date: 20070319
  Serious: No
  Sender: FDA-Public Use
  Company Number: US-BRISTOL-MYERS SQUIBB COMPANY-13331897

PATIENT
  Age: 17 None
  Sex: Female

DRUGS (1)
  1. KENALOG-40 [Suspect]
     Indication: PHARYNGITIS STREPTOCOCCAL
     Route: 030
     Dates: start: 20041104

REACTIONS (1)
  - INJECTION SITE ATROPHY [None]
